FAERS Safety Report 11092865 (Version 3)
Quarter: 2015Q3

REPORT INFORMATION
  Report Type: Spontaneous
  Country: US (occurrence: US)
  Receive Date: 20150506
  Receipt Date: 20150714
  Transmission Date: 20151125
  Serious: Yes (Other)
  Sender: FDA-Public Use
  Company Number: US-AMGEN-USASP2015043008

PATIENT
  Age: 54 Year
  Sex: Female

DRUGS (2)
  1. METHOTREXATE [Concomitant]
     Active Substance: METHOTREXATE
     Dosage: UNK MG, QWK
     Route: 048
     Dates: start: 2010
  2. ENBREL [Suspect]
     Active Substance: ETANERCEPT
     Indication: RHEUMATOID ARTHRITIS
     Dosage: 50 MG, QWK
     Route: 065
     Dates: start: 20140101

REACTIONS (14)
  - Inflammatory marker increased [Not Recovered/Not Resolved]
  - Diverticulitis [Recovered/Resolved]
  - Procedural pain [Not Recovered/Not Resolved]
  - Purulent discharge [Not Recovered/Not Resolved]
  - Injection site pain [Not Recovered/Not Resolved]
  - Dental fistula [Recovered/Resolved]
  - Pain [Not Recovered/Not Resolved]
  - Toothache [Not Recovered/Not Resolved]
  - Temporomandibular joint syndrome [Unknown]
  - Tendonitis [Not Recovered/Not Resolved]
  - Pneumonia [Recovered/Resolved]
  - Tooth abscess [Not Recovered/Not Resolved]
  - Impaired healing [Not Recovered/Not Resolved]
  - Oral cavity fistula [Not Recovered/Not Resolved]

NARRATIVE: CASE EVENT DATE: 2014
